FAERS Safety Report 5086468-9 (Version None)
Quarter: 2006Q3

REPORT INFORMATION
  Report Type: 
  Country: None (occurrence: None)
  Receive Date: 20060821
  Receipt Date: 20060821
  Transmission Date: 20061208
  Serious: No
  Sender: FDA-Public Use
  Company Number: None

PATIENT
  Age: 49 Year
  Sex: Male
  Weight: 66.6 kg

DRUGS (13)
  1. OMNISCAN [Suspect]
     Indication: HEPATIC ENCEPHALOPATHY
     Dosage: 32 CC ONE TIME INJECTION IV
     Route: 042
     Dates: start: 20000314, end: 20000314
  2. OMNISCAN [Suspect]
     Indication: HEPATITIS C
     Dosage: 32 CC ONE TIME INJECTION IV
     Route: 042
     Dates: start: 20000314, end: 20000314
  3. CEFOTETAN [Concomitant]
  4. PROPRANOLOL [Concomitant]
  5. ZN S [Concomitant]
  6. LACTULOSE [Concomitant]
  7. OCTREOTIDE ACETATE [Concomitant]
  8. EPIVIR [Concomitant]
  9. PRILOSEC [Concomitant]
  10. DIFLUCAN [Concomitant]
  11. NEURONTIN [Concomitant]
  12. DOPAMINE [Concomitant]
  13. EPOGEN [Concomitant]

REACTIONS (6)
  - JOINT RANGE OF MOTION DECREASED [None]
  - LIVER TRANSPLANT [None]
  - MUSCLE NECROSIS [None]
  - MUSCULOSKELETAL STIFFNESS [None]
  - NEPHROGENIC FIBROSING DERMOPATHY [None]
  - PAIN IN EXTREMITY [None]
